FAERS Safety Report 26109558 (Version 1)
Quarter: 2025Q4

REPORT INFORMATION
  Report Type: Spontaneous
  Country: EU (occurrence: EU)
  Receive Date: 20251201
  Receipt Date: 20251201
  Transmission Date: 20260117
  Serious: Yes (Death)
  Sender: PFIZER
  Company Number: EU-PFIZER INC-PV202500139215

PATIENT
  Age: 55 Year
  Sex: Female

DRUGS (1)
  1. LORLATINIB [Suspect]
     Active Substance: LORLATINIB
     Dosage: 100 MG

REACTIONS (1)
  - Pulmonary embolism [Fatal]
